FAERS Safety Report 18814399 (Version 1)
Quarter: 2021Q1

REPORT INFORMATION
  Report Type: Report from Study
  Country: CA (occurrence: CA)
  Receive Date: 20210201
  Receipt Date: 20210201
  Transmission Date: 20210419
  Serious: Yes (Other)
  Sender: FDA-Public Use
  Company Number: CA-ORION CORPORATION ORION PHARMA-21_00012865

PATIENT
  Sex: Female

DRUGS (5)
  1. METHOTREXATE (TRADE NAME UNKNOWN) [Suspect]
     Active Substance: METHOTREXATE
     Indication: PRODUCT USED FOR UNKNOWN INDICATION
     Route: 065
  2. HUMIRA [Concomitant]
     Active Substance: ADALIMUMAB
     Route: 058
  3. HYDROCORTISONE VALERATE. [Concomitant]
     Active Substance: HYDROCORTISONE VALERATE
     Route: 065
  4. CICLOSPORIN [Suspect]
     Active Substance: CYCLOSPORINE
     Indication: PSORIASIS
     Route: 065
  5. STELARA [Concomitant]
     Active Substance: USTEKINUMAB
     Route: 058

REACTIONS (3)
  - Demyelination [Unknown]
  - Hepatic enzyme increased [Unknown]
  - Drug ineffective [Unknown]
